FAERS Safety Report 11618842 (Version 1)
Quarter: 2015Q4

REPORT INFORMATION
  Report Type: Spontaneous
  Country: GB (occurrence: GB)
  Receive Date: 20151012
  Receipt Date: 20151012
  Transmission Date: 20160304
  Serious: Yes (Life-Threatening, Disabling, Other)
  Sender: FDA-Public Use
  Company Number: GB-TEVA-598884ACC

PATIENT
  Age: 49 Year
  Sex: Female
  Weight: 59.69 kg

DRUGS (7)
  1. WARFARIN [Interacting]
     Active Substance: WARFARIN
     Indication: MAY-THURNER SYNDROME
     Dosage: 5 MG
     Dates: start: 20141201
  2. WARFARIN [Interacting]
     Active Substance: WARFARIN
     Dosage: 8 MG
     Dates: start: 20150810
  3. PREGABALIN. [Concomitant]
     Active Substance: PREGABALIN
  4. WARFARIN [Interacting]
     Active Substance: WARFARIN
     Dosage: 5.5 MG
     Dates: start: 20150803
  5. DULOXETINE. [Concomitant]
     Active Substance: DULOXETINE
  6. CLINDAMYCIN [Suspect]
     Active Substance: CLINDAMYCIN\CLINDAMYCIN PHOSPHATE
     Indication: HIDRADENITIS
     Dosage: 600 MG
     Route: 048
     Dates: start: 20150730, end: 20150820
  7. RIFAMPICIN [Interacting]
     Active Substance: RIFAMPIN
     Indication: HIDRADENITIS
     Dosage: 600 MG
     Route: 048
     Dates: start: 20150730, end: 20150813

REACTIONS (8)
  - Headache [Unknown]
  - Liver function test abnormal [Not Recovered/Not Resolved]
  - International normalised ratio decreased [Unknown]
  - Drug interaction [Unknown]
  - Deep vein thrombosis [Recovered/Resolved with Sequelae]
  - Overdose [Unknown]
  - Joint swelling [Unknown]
  - Pain [Unknown]

NARRATIVE: CASE EVENT DATE: 20150730
